FAERS Safety Report 7056369-5 (Version None)
Quarter: 2010Q4

REPORT INFORMATION
  Report Type: 
  Country: None (occurrence: None)
  Receive Date: 20101021
  Receipt Date: 20101005
  Transmission Date: 20110411
  Serious: Yes (Hospitalization)
  Sender: FDA-Public Use
  Company Number: US-AMGEN INC.-KDL443984

PATIENT

DRUGS (5)
  1. PROCRIT [Suspect]
     Indication: PRODUCT USED FOR UNKNOWN INDICATION
     Dosage: UNK UNK, QWK
     Route: 058
     Dates: start: 20100824, end: 20100925
  2. LANSOPRAZOLE [Concomitant]
     Dosage: 50 MG, QD
     Route: 048
  3. PREDNISONE [Concomitant]
     Dosage: 5 MG, QD
     Route: 048
  4. CANDESARTAN CILEXETIL [Concomitant]
     Dosage: 60 MG, QD
     Route: 048
  5. DILTIAZEM HYDROCHLORIDE [Concomitant]
     Dosage: 160 MG, QD
     Route: 048

REACTIONS (7)
  - CHEST PAIN [None]
  - FEELING ABNORMAL [None]
  - FULL BLOOD COUNT DECREASED [None]
  - LIMB DISCOMFORT [None]
  - LOSS OF CONSCIOUSNESS [None]
  - MOBILITY DECREASED [None]
  - MYOCARDIAL INFARCTION [None]
